FAERS Safety Report 12944844 (Version 3)
Quarter: 2016Q4

REPORT INFORMATION
  Report Type: Report from Study
  Country: KR (occurrence: KR)
  Receive Date: 20161115
  Receipt Date: 20161123
  Transmission Date: 20170207
  Serious: Yes (Hospitalization, Other)
  Sender: FDA-Public Use
  Company Number: KR-TAKEDA-2016TJP023056

PATIENT
  Age: 73 Year
  Sex: Male
  Weight: 69.9 kg

DRUGS (10)
  1. VESSEL DUE F [Concomitant]
     Active Substance: SULODEXIDE
     Dosage: UNK
     Route: 048
     Dates: start: 20151203, end: 20161027
  2. TROMVIX [Concomitant]
     Dosage: UNK
     Route: 048
     Dates: start: 20151204, end: 20161027
  3. LUTSNAL [Concomitant]
     Dosage: UNK
     Route: 048
     Dates: end: 20161027
  4. DEUSTIN [Concomitant]
     Dosage: UNK
     Route: 048
     Dates: start: 20151204, end: 20161027
  5. PIOGLITAZONE. [Suspect]
     Active Substance: PIOGLITAZONE
     Indication: DIABETES MELLITUS
     Dosage: UNK UNK, QD
     Route: 048
     Dates: start: 20160520, end: 20161018
  6. DUTASTERIDE. [Concomitant]
     Active Substance: DUTASTERIDE
     Dosage: UNK
     Route: 048
     Dates: end: 20161027
  7. POBUTIN [Concomitant]
     Dosage: UNK
     Route: 048
     Dates: start: 20160201
  8. METFORMIN [Suspect]
     Active Substance: METFORMIN HYDROCHLORIDE
     Indication: DIABETES MELLITUS
     Dosage: UNK, BID
     Route: 048
     Dates: start: 20160201, end: 20161027
  9. NOVAMET GR [Concomitant]
     Dosage: UNK
     Route: 048
     Dates: start: 20160201, end: 20161027
  10. ALLEGRA [Concomitant]
     Active Substance: FEXOFENADINE HYDROCHLORIDE
     Dosage: UNK
     Route: 048
     Dates: start: 20151204

REACTIONS (1)
  - Ureteric cancer [Recovering/Resolving]

NARRATIVE: CASE EVENT DATE: 20161013
